FAERS Safety Report 9226914 (Version 1)
Quarter: 2013Q2

REPORT INFORMATION
  Report Type: Report from Study
  Country: CA (occurrence: CA)
  Receive Date: 20130412
  Receipt Date: 20130412
  Transmission Date: 20140414
  Serious: Yes (Other)
  Sender: FDA-Public Use
  Company Number: CA-JNJFOC-20130404291

PATIENT
  Age: 35 Year
  Sex: Female
  Weight: 84 kg

DRUGS (2)
  1. REMICADE [Suspect]
     Indication: CROHN^S DISEASE
     Route: 042
     Dates: start: 20101022
  2. REMICADE [Suspect]
     Indication: CROHN^S DISEASE
     Route: 042
     Dates: start: 20130403

REACTIONS (3)
  - Intestinal obstruction [Unknown]
  - Cholelithiasis [Unknown]
  - Crohn^s disease [Unknown]
